FAERS Safety Report 23878233 (Version 1)
Quarter: 2024Q2

REPORT INFORMATION
  Report Type: Spontaneous
  Country: US (occurrence: US)
  Receive Date: 20240521
  Receipt Date: 20240521
  Transmission Date: 20240716
  Serious: No
  Sender: FDA-Public Use
  Company Number: US-E2BLSMVVAL-SPO/USA/24/0007125

PATIENT
  Age: 47 Year
  Sex: Male

DRUGS (1)
  1. LENALIDOMIDE [Suspect]
     Active Substance: LENALIDOMIDE
     Indication: Product used for unknown indication
     Dosage: 21 COUNT
     Route: 065
     Dates: start: 20230804

REACTIONS (3)
  - Product dispensing error [Unknown]
  - Treatment delayed [Unknown]
  - Clinical trial participant [Unknown]
